FAERS Safety Report 6099937-X (Version None)
Quarter: 2009Q1

REPORT INFORMATION
  Report Type: 
  Country: None (occurrence: None)
  Receive Date: 20090303
  Receipt Date: 20090224
  Transmission Date: 20090719
  Serious: Yes (Other)
  Sender: FDA-Public Use
  Company Number: US-AVENTIS-200910887US

PATIENT
  Sex: Female
  Weight: 56.4 kg

DRUGS (3)
  1. APIDRA [Suspect]
     Dosage: DOSE: 5 UNITS BEFORE MEALS 2-3 TIMES PER DAY
     Route: 051
  2. OPTICLIK GREY [Suspect]
  3. STARLIX [Concomitant]
     Dosage: DOSE: 1 TAB
     Dates: start: 20060101

REACTIONS (2)
  - CONDITION AGGRAVATED [None]
  - RENAL FAILURE [None]
